FAERS Safety Report 15770052 (Version 7)
Quarter: 2022Q1

REPORT INFORMATION
  Report Type: Spontaneous
  Country: DE (occurrence: DE)
  Receive Date: 20181228
  Receipt Date: 20220225
  Transmission Date: 20220423
  Serious: Yes (Hospitalization, Other)
  Sender: FDA-Public Use
  Company Number: DE-JNJFOC-20180718020

PATIENT
  Age: 3 Decade
  Sex: Male

DRUGS (5)
  1. CELECOXIB [Suspect]
     Active Substance: CELECOXIB
     Indication: Axial spondyloarthritis
     Dosage: UNK
     Route: 065
  2. CELECOXIB [Suspect]
     Active Substance: CELECOXIB
     Indication: Psoriatic arthropathy
     Dosage: 400 MILLIGRAM, ONCE A DAY
     Route: 065
     Dates: start: 20180405
  3. ETORICOXIB [Suspect]
     Active Substance: ETORICOXIB
     Indication: Axial spondyloarthritis
     Dosage: 90 MILLIGRAM, ONCE A DAY (CUMULATIVE DOSE TO FIRST REACTION: 10080 MILLIGRAM )
     Route: 065
     Dates: start: 20171013, end: 20180405
  4. SIMPONI [Suspect]
     Active Substance: GOLIMUMAB
     Indication: Axial spondyloarthritis
     Dosage: 50 MILLIGRAM,4 WEEK
     Route: 058
     Dates: start: 20171201
  5. SIMPONI [Suspect]
     Active Substance: GOLIMUMAB
     Indication: Psoriatic arthropathy

REACTIONS (4)
  - Appendicitis [Recovered/Resolved]
  - Viral upper respiratory tract infection [Unknown]
  - Nasopharyngitis [Unknown]
  - Pregnancy of partner [Recovered/Resolved]

NARRATIVE: CASE EVENT DATE: 20180201
